FAERS Safety Report 6892085-8 (Version None)
Quarter: 2010Q3

REPORT INFORMATION
  Report Type: 
  Country: None (occurrence: None)
  Receive Date: 20100731
  Receipt Date: 20080123
  Transmission Date: 20110219
  Serious: No
  Sender: FDA-Public Use
  Company Number: US-PFIZER INC-2008007173

PATIENT
  Sex: Female
  Weight: 85 kg

DRUGS (3)
  1. AMLODIPINE [Suspect]
     Indication: HYPERTENSION
     Dates: start: 20071201
  2. NORVASC [Concomitant]
     Indication: HYPERTENSION
     Route: 048
     Dates: start: 20030101, end: 20071201
  3. PROTONIX [Concomitant]
     Route: 048
     Dates: start: 20020101

REACTIONS (1)
  - HOT FLUSH [None]
